FAERS Safety Report 5487843-0 (Version None)
Quarter: 2007Q3

REPORT INFORMATION
  Report Type: 
  Country: None (occurrence: None)
  Receive Date: 20070925
  Receipt Date: 20070531
  Transmission Date: 20080115
  Serious: No
  Sender: FDA-Public Use
  Company Number: 2007US001290

PATIENT
  Age: 71 Year
  Sex: Female

DRUGS (9)
  1. VESICARE [Suspect]
     Indication: HYPERTONIC BLADDER
     Dosage: 5 MG, UID/QD, ORAL; 10 MG, UID/QD
     Route: 048
     Dates: start: 20060101
  2. HYDROCHLOROTHIAZIDE [Concomitant]
  3. ATENOLOL [Concomitant]
  4. ASPIRIN [Concomitant]
  5. CALCIUM (ASCORBIC ACID) [Concomitant]
  6. PROPRANOLOL [Concomitant]
  7. GEMFIBROZIL [Concomitant]
  8. ACTONEL [Concomitant]
  9. AMBIEN [Concomitant]

REACTIONS (2)
  - DRUG INEFFECTIVE [None]
  - URINARY INCONTINENCE [None]
